FAERS Safety Report 9893604 (Version 2)
Quarter: 2014Q4

REPORT INFORMATION
  Report Type: Spontaneous
  Country: US (occurrence: US)
  Receive Date: 20140213
  Receipt Date: 20141028
  Transmission Date: 20150529
  Serious: Yes (Hospitalization, Other)
  Sender: FDA-Public Use
  Company Number: US-009507513-1402USA005091

PATIENT
  Sex: Female

DRUGS (1)
  1. NUVARING [Suspect]
     Active Substance: ETHINYL ESTRADIOL\ETONOGESTREL
     Indication: CONTRACEPTION
     Dosage: UNK
     Route: 067
     Dates: end: 20110208

REACTIONS (14)
  - Unintended pregnancy [Recovered/Resolved]
  - Tendonitis [Unknown]
  - Food poisoning [Unknown]
  - Sinus operation [Unknown]
  - Limb injury [Unknown]
  - Tonsillectomy [Unknown]
  - Caesarean section [Unknown]
  - Pulmonary embolism [Unknown]
  - Deep vein thrombosis [Unknown]
  - Asthma exercise induced [Unknown]
  - Adenoidectomy [Unknown]
  - Pneumonia [Unknown]
  - Sarcoidosis [Unknown]
  - Lung disorder [Unknown]

NARRATIVE: CASE EVENT DATE: 2011
